FAERS Safety Report 7915029-6 (Version None)
Quarter: 2011Q4

REPORT INFORMATION
  Report Type: 
  Country: None (occurrence: None)
  Receive Date: 20111115
  Receipt Date: 20111110
  Transmission Date: 20120403
  Serious: Yes (Death, Hospitalization, Other)
  Sender: FDA-Public Use
  Company Number: US-AMGEN-US359847

PATIENT
  Age: 33 Year
  Sex: Male

DRUGS (13)
  1. NPLATE [Suspect]
     Indication: IDIOPATHIC THROMBOCYTOPENIC PURPURA
     Dosage: 1 MUG/KG, UNK
     Route: 058
     Dates: start: 20090422, end: 20090422
  2. (CASPOFUNGIN ACETATE) FOR INJECTION [Concomitant]
  3. BLOOD CELLS, PACKED HUMAN [Concomitant]
  4. CORTICOSTEROIDS [Concomitant]
  5. METHYLPREDNISOLONE SODIUM SUCCINATE [Concomitant]
  6. CYCLOSPORINE [Concomitant]
  7. VORICONAZOLE [Concomitant]
  8. TOBRAMYCIN [Concomitant]
  9. DULOXETIME HYDROCHLORIDE [Concomitant]
  10. HYDROMORPHONE HCL [Concomitant]
  11. ATOVAQUONE [Concomitant]
  12. IMIPENEM [Concomitant]
  13. PLATELETS [Concomitant]

REACTIONS (5)
  - GENERAL PHYSICAL HEALTH DETERIORATION [None]
  - CARDIAC ARREST [None]
  - PULMONARY HAEMORRHAGE [None]
  - PULSELESS ELECTRICAL ACTIVITY [None]
  - DRUG INEFFECTIVE [None]
